FAERS Safety Report 7498644 (Version 3)
Quarter: 2020Q3

REPORT INFORMATION
  Report Type: Report from Study
  Country: DE (occurrence: DE)
  Receive Date: 20100723
  Receipt Date: 20111122
  Transmission Date: 20201105
  Serious: Yes (Hospitalization)
  Sender: FDA-Public Use
  Company Number: DE-JNJFOC-20100704883

PATIENT
  Age: 27 Year
  Sex: Male
  Weight: 82 kg

DRUGS (8)
  1. GOLIMUMAB [Suspect]
     Active Substance: GOLIMUMAB
     Route: 058
     Dates: start: 20090317, end: 20100615
  2. MESALAMINE. [Concomitant]
     Active Substance: MESALAMINE
     Indication: COLITIS ULCERATIVE
     Route: 048
     Dates: start: 200806
  3. METHOTREXATE. [Concomitant]
     Active Substance: METHOTREXATE
     Indication: COLITIS ULCERATIVE
     Route: 048
     Dates: start: 20081103
  4. PANTOZOL [Concomitant]
     Active Substance: PANTOPRAZOLE SODIUM
     Route: 048
     Dates: start: 200804
  5. CLEXANE [Concomitant]
     Active Substance: ENOXAPARIN SODIUM
     Route: 058
     Dates: start: 200812
  6. GOLIMUMAB [Suspect]
     Active Substance: GOLIMUMAB
     Indication: COLITIS ULCERATIVE
     Route: 058
     Dates: start: 20090210
  7. CALCIMAGON D3 [Concomitant]
     Active Substance: CALCIUM\CHOLECALCIFEROL
     Route: 048
     Dates: start: 200812
  8. FERROSANOL DUODENAL [Concomitant]
     Active Substance: FERROGLYCINE SULFATE
     Route: 048
     Dates: start: 200802

REACTIONS (1)
  - Meningitis viral [Recovered/Resolved]

NARRATIVE: CASE EVENT DATE: 20100706
